FAERS Safety Report 8189762-8 (Version None)
Quarter: 2012Q1

REPORT INFORMATION
  Report Type: 
  Country: None (occurrence: None)
  Receive Date: 20120307
  Receipt Date: 20120228
  Transmission Date: 20120608
  Serious: Yes (Hospitalization)
  Sender: FDA-Public Use
  Company Number: US-BAYER-2011-047106

PATIENT
  Age: 43 Year
  Sex: Female
  Weight: 90.703 kg

DRUGS (11)
  1. YAZ [Suspect]
     Indication: PREMENSTRUAL SYNDROME
  2. TRAZODONE HCL [Concomitant]
     Dosage: 50 MG, UNK
     Dates: start: 20070922, end: 20110301
  3. CYMBALTA [Concomitant]
     Dosage: 60 MG, UNK
     Dates: start: 20070806, end: 20101107
  4. XIFAXAN [Concomitant]
     Dosage: 200 MG, UNK
     Dates: start: 20090323
  5. YAZ [Suspect]
     Indication: CONTRACEPTION
     Dosage: UNK
     Dates: start: 20081001, end: 20100201
  6. GLYCOPYRROLATE [Concomitant]
     Dosage: 1 MG, UNK
     Dates: start: 20090113, end: 20090317
  7. LEVAQUIN [Concomitant]
     Dosage: UNK
     Dates: start: 20090325
  8. DETROL LA [Concomitant]
     Dosage: 4 MG, UNK
     Dates: start: 20021125, end: 20090701
  9. ZEGERID [Concomitant]
     Dosage: UNK
     Dates: start: 20090219, end: 20090503
  10. YAZ [Suspect]
     Indication: MENSTRUAL CYCLE MANAGEMENT
  11. METOCLOPRAMIDE [Concomitant]
     Dosage: 10 MG, UNK
     Dates: start: 20090209, end: 20090411

REACTIONS (8)
  - GALLBLADDER DISORDER [None]
  - ABDOMINAL PAIN UPPER [None]
  - PSYCHOLOGICAL TRAUMA [None]
  - ANXIETY [None]
  - INJURY [None]
  - CHOLECYSTITIS [None]
  - PAIN [None]
  - EMOTIONAL DISTRESS [None]
